FAERS Safety Report 8853462 (Version 1)
Quarter: 2012Q4

REPORT INFORMATION
  Report Type: 
  Country: US (occurrence: US)
  Receive Date: 20121022
  Receipt Date: 20121022
  Transmission Date: 20130627
  Serious: Yes (Death, Hospitalization)
  Sender: FDA-Public Use
  Company Number: US-ROXANE LABORATORIES, INC.-2012-RO-02030RO

PATIENT
  Age: 19 Year
  Sex: Female

DRUGS (3)
  1. CYCLOPHOSPHAMIDE TABLETS USP [Suspect]
     Indication: MEDULLOBLASTOMA
  2. CISPLATIN [Suspect]
     Indication: MEDULLOBLASTOMA
  3. VINCRISTINE [Suspect]
     Indication: MEDULLOBLASTOMA

REACTIONS (4)
  - Sepsis [Fatal]
  - Multi-organ failure [Fatal]
  - Chronic myeloid leukaemia [Unknown]
  - Blast crisis in myelogenous leukaemia [Unknown]
